FAERS Safety Report 20356265 (Version 3)
Quarter: 2022Q1

REPORT INFORMATION
  Report Type: Report from Study
  Country: CO (occurrence: CO)
  Receive Date: 20220120
  Receipt Date: 20220217
  Transmission Date: 20220424
  Serious: Yes (Other)
  Sender: FDA-Public Use
  Company Number: CO-ASTELLAS-2022US001806

PATIENT
  Age: 87 Year
  Sex: Male

DRUGS (1)
  1. ENZALUTAMIDE [Suspect]
     Active Substance: ENZALUTAMIDE
     Indication: Hormone-refractory prostate cancer
     Route: 048
     Dates: start: 20210528

REACTIONS (7)
  - Gastric ulcer [Recovering/Resolving]
  - Osteitis [Recovering/Resolving]
  - Gastritis [Recovering/Resolving]
  - Inflammation [Not Recovered/Not Resolved]
  - Nipple inflammation [Not Recovered/Not Resolved]
  - Nipple pain [Not Recovered/Not Resolved]
  - Hypophagia [Unknown]

NARRATIVE: CASE EVENT DATE: 20211101
